FAERS Safety Report 19213378 (Version 1)
Quarter: 2021Q2

REPORT INFORMATION
  Report Type: Spontaneous
  Country: GB (occurrence: GB)
  Receive Date: 20210504
  Receipt Date: 20210504
  Transmission Date: 20210717
  Serious: Yes (Hospitalization)
  Sender: FDA-Public Use
  Company Number: GB-ENDO PHARMACEUTICALS INC-2021-002583

PATIENT
  Age: 26 Year
  Sex: Female

DRUGS (3)
  1. NALOXONE [Concomitant]
     Active Substance: NALOXONE
     Indication: OVERDOSE
     Dosage: 400 ?G, UNKNOWN
     Route: 065
  2. ADRENALIN [Suspect]
     Active Substance: EPINEPHRINE
     Indication: RESUSCITATION
     Dosage: 2 MG, UNK
     Route: 013
  3. NOREPINEPHRINE. [Concomitant]
     Active Substance: NOREPINEPHRINE
     Indication: BLOOD PRESSURE MANAGEMENT

REACTIONS (3)
  - Peripheral ischaemia [Recovered/Resolved]
  - Compartment syndrome [Recovered/Resolved]
  - Incorrect route of product administration [Recovered/Resolved]
